FAERS Safety Report 5607316-1 (Version None)
Quarter: 2008Q1

REPORT INFORMATION
  Report Type: 
  Country: None (occurrence: None)
  Receive Date: 20080130
  Receipt Date: 20080118
  Transmission Date: 20080703
  Serious: Yes (Other)
  Sender: FDA-Public Use
  Company Number: US-JNJFOC-20080105337

PATIENT
  Sex: Male

DRUGS (1)
  1. TYLENOL COLD MULTI-SYMPTOM DAYTIME  COOL BURST [Suspect]
     Indication: DRUG USE FOR UNKNOWN INDICATION

REACTIONS (1)
  - EYE DISORDER [None]
